FAERS Safety Report 23341919 (Version 2)
Quarter: 2023Q4

REPORT INFORMATION
  Report Type: Spontaneous
  Country: US (occurrence: US)
  Receive Date: 20231227
  Receipt Date: 20231229
  Transmission Date: 20240109
  Serious: Yes (Hospitalization)
  Sender: FDA-Public Use
  Company Number: US-Millicent Holdings Ltd.-MILL20230370

PATIENT
  Age: 64 Year
  Sex: Female

DRUGS (7)
  1. FEMRING [Suspect]
     Active Substance: ESTRADIOL ACETATE
     Indication: Menopausal symptoms
     Dosage: 0.10 MG / DAY
     Route: 067
  2. FEMRING [Suspect]
     Active Substance: ESTRADIOL ACETATE
     Indication: Menopause
  3. FEMRING [Suspect]
     Active Substance: ESTRADIOL ACETATE
     Indication: Menopausal symptoms
     Dosage: 0.05 MG / DAY
     Route: 067
  4. FEMRING [Suspect]
     Active Substance: ESTRADIOL ACETATE
     Indication: Menopause
  5. FEMRING [Suspect]
     Active Substance: ESTRADIOL ACETATE
     Indication: Cardiovascular event prophylaxis
  6. FEMRING [Suspect]
     Active Substance: ESTRADIOL ACETATE
     Indication: Osteoporosis prophylaxis
  7. PROGESTERONE [Concomitant]
     Active Substance: PROGESTERONE
     Indication: Product used for unknown indication
     Dosage: 100 MG, DAILY
     Route: 065

REACTIONS (5)
  - Endometrial thickening [Recovered/Resolved]
  - Vaginal haemorrhage [Recovered/Resolved]
  - Hot flush [Recovered/Resolved]
  - Product availability issue [Unknown]
  - Product use in unapproved indication [None]

NARRATIVE: CASE EVENT DATE: 20231101
